FAERS Safety Report 18534429 (Version 1)
Quarter: 2020Q4

REPORT INFORMATION
  Report Type: Spontaneous
  Country: US (occurrence: US)
  Receive Date: 20201123
  Receipt Date: 20201123
  Transmission Date: 20210114
  Serious: No
  Sender: FDA-Public Use
  Company Number: None

PATIENT
  Age: 52 Year
  Sex: Female

DRUGS (9)
  1. CALCIUM + D 1200MG [Concomitant]
  2. AFINITOR [Suspect]
     Active Substance: EVEROLIMUS
     Indication: BREAST CANCER
     Route: 048
     Dates: start: 20200820, end: 20201116
  3. VIT D 50,000 IU (ERGO) [Concomitant]
  4. OXYCODONE 10MG [Concomitant]
     Active Substance: OXYCODONE
  5. XGEVA [Concomitant]
     Active Substance: DENOSUMAB
  6. OXYCONTIN 30MG [Concomitant]
  7. EXEMESTANE 25MG [Concomitant]
     Active Substance: EXEMESTANE
  8. ZOFRAN [Concomitant]
     Active Substance: ONDANSETRON HYDROCHLORIDE
  9. OMEPRAZOLE 20MG [Concomitant]
     Active Substance: OMEPRAZOLE

REACTIONS (1)
  - Drug ineffective [None]

NARRATIVE: CASE EVENT DATE: 20201116
